FAERS Safety Report 23516126 (Version 1)
Quarter: 2024Q1

REPORT INFORMATION
  Report Type: 
  Country: None (occurrence: None)
  Receive Date: 20240213
  Receipt Date: 20240213
  Transmission Date: 20240410
  Serious: No
  Sender: FDA-Public Use
  Company Number: US-ROCHE-3507918

PATIENT

DRUGS (3)
  1. PERTUZUMAB\TRASTUZUMAB [Suspect]
     Active Substance: PERTUZUMAB\TRASTUZUMAB
     Dosage: ON 24/JAN/2024, RECEIVED THE MOST RECENT DOSE OF STUDY DRUG
  2. PACLITAXEL [Suspect]
     Active Substance: PACLITAXEL
     Dosage: ON 24/JAN/2024, RECEIVED THE MOST RECENT DOSE OF STUDY DRUG
  3. CARBOPLATIN [Suspect]
     Active Substance: CARBOPLATIN
     Dosage: ON 24/JAN/2024, RECEIVED THE MOST RECENT DOSE OF STUDY DRUG

REACTIONS (1)
  - Hypokalaemia [None]

NARRATIVE: CASE EVENT DATE: 20240102
